FAERS Safety Report 4808911-X (Version None)
Quarter: 2005Q4

REPORT INFORMATION
  Report Type: 
  Country: None (occurrence: None)
  Receive Date: 20051020
  Receipt Date: 20051020
  Transmission Date: 20060501
  Serious: Yes (Hospitalization, Other)
  Sender: FDA-Public Use
  Company Number: None

PATIENT
  Sex: Female
  Weight: 106.9 kg

DRUGS (6)
  1. TEMOZOLOMIDE [Suspect]
     Indication: GLIOBLASTOMA MULTIFORME
     Dosage: SEE IMAGE
     Dates: start: 20050922, end: 20050926
  2. TEMOZOLOMIDE [Suspect]
     Indication: GLIOBLASTOMA MULTIFORME
     Dosage: SEE IMAGE
     Dates: start: 20050922
  3. RADIATION [Suspect]
     Dosage: SEE IMAGE
  4. IRINOTECAN HCL [Suspect]
     Dosage: SEE IMAGE
     Dates: start: 20050922, end: 20050922
  5. DEXAMETHASONE [Concomitant]
  6. LOVENOX [Concomitant]

REACTIONS (6)
  - COMPARTMENT SYNDROME [None]
  - HAEMORRHAGE [None]
  - PAIN [None]
  - POSTOPERATIVE WOUND COMPLICATION [None]
  - SWELLING [None]
  - WOUND DEHISCENCE [None]
